FAERS Safety Report 23679124 (Version 1)
Quarter: 2024Q1

REPORT INFORMATION
  Report Type: Spontaneous
  Country: CN (occurrence: None)
  Receive Date: 20240327
  Receipt Date: 20240327
  Transmission Date: 20240409
  Serious: Yes (Hospitalization)
  Sender: FDA-Public Use
  Company Number: 2024A071229

PATIENT
  Age: 23216 Day
  Sex: Female
  Weight: 35.7 kg

DRUGS (1)
  1. OLAPARIB [Suspect]
     Active Substance: OLAPARIB
     Indication: Neoplasm malignant
     Route: 048
     Dates: start: 20211201, end: 20240311

REACTIONS (7)
  - Faeces discoloured [Recovering/Resolving]
  - Gastrooesophageal reflux disease [Unknown]
  - Nausea [Recovering/Resolving]
  - Vomiting [Recovering/Resolving]
  - Asthenia [Unknown]
  - Dizziness [Unknown]
  - Decreased appetite [Unknown]

NARRATIVE: CASE EVENT DATE: 20240311
